FAERS Safety Report 5090832-1 (Version None)
Quarter: 2006Q3

REPORT INFORMATION
  Report Type: 
  Country: None (occurrence: None)
  Receive Date: 20060823
  Receipt Date: 20060811
  Transmission Date: 20061208
  Serious: Yes (Hospitalization, Other)
  Sender: FDA-Public Use
  Company Number: ENTC2006-0222

PATIENT
  Age: 90 Year
  Sex: Male

DRUGS (15)
  1. STALEVO 100 [Suspect]
     Indication: AGITATION
     Dosage: 100/25/200MG ORAL; SEE IMAGE
     Route: 048
     Dates: start: 20050101
  2. STALEVO 100 [Suspect]
     Indication: ANAEMIA
     Dosage: 100/25/200MG ORAL; SEE IMAGE
     Route: 048
     Dates: start: 20050101
  3. STALEVO 100 [Suspect]
     Indication: ANOREXIA
     Dosage: 100/25/200MG ORAL; SEE IMAGE
     Route: 048
     Dates: start: 20050101
  4. STALEVO 100 [Suspect]
     Indication: ASTHENIA
     Dosage: 100/25/200MG ORAL; SEE IMAGE
     Route: 048
     Dates: start: 20050101
  5. STALEVO 100 [Suspect]
     Indication: CONSTIPATION
     Dosage: 100/25/200MG ORAL; SEE IMAGE
     Route: 048
     Dates: start: 20050101
  6. STALEVO 100 [Suspect]
     Indication: DIARRHOEA
     Dosage: 100/25/200MG ORAL; SEE IMAGE
     Route: 048
     Dates: start: 20050101
  7. STALEVO 100 [Suspect]
     Indication: FEELING ABNORMAL
     Dosage: 100/25/200MG ORAL; SEE IMAGE
     Route: 048
     Dates: start: 20050101
  8. STALEVO 100 [Suspect]
     Indication: INSOMNIA
     Dosage: 100/25/200MG ORAL; SEE IMAGE
     Route: 048
     Dates: start: 20050101
  9. STALEVO 100 [Suspect]
     Indication: JAUNDICE
     Dosage: 100/25/200MG ORAL; SEE IMAGE
     Route: 048
     Dates: start: 20050101
  10. STALEVO 100 [Suspect]
     Indication: LARYNGOSPASM
     Dosage: 100/25/200MG ORAL; SEE IMAGE
     Route: 048
     Dates: start: 20050101
  11. STALEVO 100 [Suspect]
     Indication: PARKINSON'S DISEASE
     Dosage: 100/25/200MG ORAL; SEE IMAGE
     Route: 048
     Dates: start: 20050101
  12. NIAR [Concomitant]
  13. ENALAPRIL [Concomitant]
  14. CAPTOPRIL [Concomitant]
  15. CILOSTAZOL [Concomitant]

REACTIONS (11)
  - AGITATION [None]
  - ANAEMIA [None]
  - ANOREXIA [None]
  - ASTHENIA [None]
  - CONSTIPATION [None]
  - DIARRHOEA [None]
  - FEELING ABNORMAL [None]
  - INSOMNIA [None]
  - JAUNDICE [None]
  - LARYNGOSPASM [None]
  - PNEUMONIA ASPIRATION [None]
